FAERS Safety Report 10175084 (Version 1)
Quarter: 2014Q2

REPORT INFORMATION
  Report Type: Spontaneous
  Country: US (occurrence: US)
  Receive Date: 20140515
  Receipt Date: 20140515
  Transmission Date: 20141212
  Serious: Yes (Hospitalization, Other)
  Sender: FDA-Public Use
  Company Number: US-ELI_LILLY_AND_COMPANY-US201405001332

PATIENT
  Sex: Female

DRUGS (2)
  1. HUMULIN NPH [Suspect]
     Indication: TYPE 2 DIABETES MELLITUS
     Route: 065
  2. HUMULIN NPH [Suspect]
     Dosage: UNK
     Route: 065

REACTIONS (7)
  - Loss of consciousness [Unknown]
  - Blood glucose decreased [Unknown]
  - Presyncope [Unknown]
  - Trance [Unknown]
  - Incoherent [Unknown]
  - Abnormal behaviour [Unknown]
  - Incorrect product storage [Unknown]
